FAERS Safety Report 5741771-1 (Version None)
Quarter: 2008Q2

REPORT INFORMATION
  Report Type: 
  Country: None (occurrence: None)
  Receive Date: 20080519
  Receipt Date: 20080326
  Transmission Date: 20081010
  Serious: Yes (Hospitalization, Other)
  Sender: FDA-Public Use
  Company Number: BE-BAYER-200815646GPV

PATIENT
  Age: 54 Year
  Sex: Female

DRUGS (8)
  1. AVELOX [Suspect]
     Indication: STOMATITIS
     Dosage: TOTAL DAILY DOSE: 400 MG  UNIT DOSE: 400 MG
     Route: 048
     Dates: start: 20080303, end: 20080321
  2. ADALAT [Concomitant]
     Indication: CREST SYNDROME
     Dosage: TOTAL DAILY DOSE: 10 MG  UNIT DOSE: 5 MG
     Route: 048
  3. ADALAT [Concomitant]
     Dosage: AS USED: 5 MG  UNIT DOSE: 5 MG
     Route: 048
     Dates: start: 20070709
  4. MARCUMAR [Concomitant]
     Indication: PULMONARY HYPERTENSION
     Dosage: TOTAL DAILY DOSE: 0.75 MG  UNIT DOSE: 3 MG
     Route: 048
     Dates: start: 20070709
  5. TRACLEER [Concomitant]
     Indication: PULMONARY HYPERTENSION
     Route: 048
     Dates: start: 20080123, end: 20080205
  6. FLIXONASE AQUA [Concomitant]
     Indication: HOUSE DUST ALLERGY
     Route: 065
     Dates: start: 20080212
  7. XYZAL [Concomitant]
     Indication: HOUSE DUST ALLERGY
     Dosage: TOTAL DAILY DOSE: 5 MG  UNIT DOSE: 5 MG
     Route: 048
     Dates: start: 20080226
  8. AVELOX [Concomitant]
     Indication: UPPER RESPIRATORY TRACT INFECTION
     Route: 065
     Dates: start: 20071217, end: 20071226

REACTIONS (5)
  - HEPATIC FUNCTION ABNORMAL [None]
  - OXYGEN SATURATION DECREASED [None]
  - PERICARDIAL EFFUSION [None]
  - PLEURAL EFFUSION [None]
  - PULMONARY EMBOLISM [None]
